FAERS Safety Report 17061500 (Version 2)
Quarter: 2019Q4

REPORT INFORMATION
  Report Type: Spontaneous
  Country: FR (occurrence: FR)
  Receive Date: 20191121
  Receipt Date: 20191209
  Transmission Date: 20200122
  Serious: Yes (Other)
  Sender: FDA-Public Use
  Company Number: FR-ELI_LILLY_AND_COMPANY-FR201911005855

PATIENT
  Age: 50 Year
  Sex: Male

DRUGS (1)
  1. ZYPREXA [Suspect]
     Active Substance: OLANZAPINE
     Indication: DEPRESSION
     Dosage: 10 MG, DAILY
     Route: 065
     Dates: start: 201102, end: 201111

REACTIONS (4)
  - Off label use [Recovered/Resolved]
  - Cardiometabolic syndrome [Unknown]
  - Weight increased [Unknown]
  - Diabetes mellitus [Not Recovered/Not Resolved]

NARRATIVE: CASE EVENT DATE: 2011
